FAERS Safety Report 5302515-0 (Version None)
Quarter: 2007Q1

REPORT INFORMATION
  Report Type: 
  Country: None (occurrence: None)
  Receive Date: 20070201
  Receipt Date: 20061129
  Transmission Date: 20070707
  Serious: No
  Sender: FDA-Public Use
  Company Number: 2006PV026031

PATIENT
  Age: 42 Year
  Sex: Male
  Weight: 90.7194 kg

DRUGS (5)
  1. BYETTA [Suspect]
     Indication: DIABETES MELLITUS NON-INSULIN-DEPENDENT
     Dosage: 10 MCG; SC; 5 MCG; BID; SC
     Route: 058
     Dates: start: 20061021, end: 20061119
  2. BYETTA [Suspect]
     Indication: DIABETES MELLITUS NON-INSULIN-DEPENDENT
     Dosage: 10 MCG; SC; 5 MCG; BID; SC
     Route: 058
     Dates: start: 20061120
  3. ACTOPLUS MET [Concomitant]
  4. LIPITOR [Concomitant]
  5. SYNTHROID [Concomitant]

REACTIONS (1)
  - URTICARIA GENERALISED [None]
